FAERS Safety Report 5858253-9 (Version None)
Quarter: 2008Q3

REPORT INFORMATION
  Report Type: 
  Country: None (occurrence: None)
  Receive Date: 20080826
  Receipt Date: 20080820
  Transmission Date: 20090109
  Serious: Yes (Other)
  Sender: FDA-Public Use
  Company Number: A0743554A

PATIENT
  Sex: Female

DRUGS (10)
  1. REQUIP [Suspect]
     Indication: PARKINSON'S DISEASE
     Dosage: 2MG THREE TIMES PER DAY
     Route: 048
     Dates: start: 20060101, end: 20080701
  2. ROPINIROLE HYDROCHLORIDE [Suspect]
     Indication: PARKINSON'S DISEASE
     Dosage: 6MG PER DAY
     Route: 048
     Dates: start: 20080801
  3. ROPINIROLE HYDROCHLORIDE [Suspect]
     Route: 048
  4. REQUIP XL [Suspect]
     Indication: PARKINSON'S DISEASE
     Dosage: 6MG PER DAY
     Route: 048
  5. ZETIA [Concomitant]
  6. AVALIDE [Concomitant]
  7. FOSAMAX [Concomitant]
  8. SYNTHROID [Concomitant]
  9. RANITIDINE [Concomitant]
  10. PRILOSEC [Concomitant]

REACTIONS (7)
  - CATARACT [None]
  - CONSTIPATION [None]
  - DIZZINESS [None]
  - DRY MOUTH [None]
  - MYODESOPSIA [None]
  - NAUSEA [None]
  - VISION BLURRED [None]
